FAERS Safety Report 11933908 (Version 3)
Quarter: 2016Q1

REPORT INFORMATION
  Report Type: Spontaneous
  Country: NO (occurrence: NO)
  Receive Date: 20160121
  Receipt Date: 20160212
  Transmission Date: 20160526
  Serious: Yes (Hospitalization, Other)
  Sender: FDA-Public Use
  Company Number: NO-ABBVIE-16K-122-1540112-00

PATIENT
  Sex: Male
  Weight: 74 kg

DRUGS (4)
  1. HUMIRA [Suspect]
     Active Substance: ADALIMUMAB
     Indication: CROHN^S DISEASE
     Route: 058
     Dates: start: 20151221, end: 20151221
  2. HUMIRA [Suspect]
     Active Substance: ADALIMUMAB
     Route: 058
     Dates: start: 20160105, end: 20160105
  3. AERIUS [Concomitant]
     Active Substance: DESLORATADINE
     Indication: ASTHMA
  4. VENTOLINE [Concomitant]
     Active Substance: ALBUTEROL
     Indication: ASTHMA

REACTIONS (8)
  - Anaphylactic reaction [Recovered/Resolved]
  - Anaphylactic reaction [Unknown]
  - Blood pressure decreased [Recovering/Resolving]
  - Dyspnoea [Recovering/Resolving]
  - Upper respiratory tract congestion [Recovered/Resolved]
  - Upper respiratory tract congestion [Recovering/Resolving]
  - Rash macular [Recovering/Resolving]
  - Dyspnoea [Recovered/Resolved]

NARRATIVE: CASE EVENT DATE: 201512
